FAERS Safety Report 5256921-3 (Version None)
Quarter: 2007Q1

REPORT INFORMATION
  Report Type: 
  Country: None (occurrence: None)
  Receive Date: 20070305
  Receipt Date: 20070305
  Transmission Date: 20070707
  Serious: No
  Sender: FDA-Public Use
  Company Number: None

PATIENT
  Age: 52 Year
  Sex: Male
  Weight: 115.6672 kg

DRUGS (1)
  1. ADENOSINE [Suspect]
     Indication: DIAGNOSTIC PROCEDURE
     Dosage: ONCE

REACTIONS (1)
  - BRONCHOSPASM [None]
